FAERS Safety Report 6039384-X (Version None)
Quarter: 2009Q1

REPORT INFORMATION
  Report Type: 
  Country: None (occurrence: None)
  Receive Date: 20090114
  Receipt Date: 20090106
  Transmission Date: 20090719
  Serious: Yes (Hospitalization)
  Sender: FDA-Public Use
  Company Number: US025251

PATIENT
  Age: 76 Year
  Sex: Male

DRUGS (2)
  1. TRISENOX [Suspect]
     Indication: ACUTE MYELOID LEUKAEMIA
     Dosage: INTRAVENOUS
     Route: 042
     Dates: start: 20081112, end: 20081122
  2. ARA-C [Suspect]
     Indication: ACUTE MYELOID LEUKAEMIA
     Dates: start: 20081112, end: 20081122

REACTIONS (1)
  - PANCYTOPENIA [None]
